FAERS Safety Report 22072608 (Version 4)
Quarter: 2023Q2

REPORT INFORMATION
  Report Type: Spontaneous
  Country: CA (occurrence: CA)
  Receive Date: 20230308
  Receipt Date: 20230520
  Transmission Date: 20230722
  Serious: Yes (Death, Other)
  Sender: FDA-Public Use
  Company Number: CA-CELLTRION INC.-2023CA004874

PATIENT

DRUGS (5)
  1. INFLECTRA [Suspect]
     Active Substance: INFLIXIMAB-DYYB
     Indication: Colitis ulcerative
     Dosage: 5 MG/KG, 0, 2, 6 AND EVERY 8 WEEKS
     Route: 042
     Dates: start: 20221118
  2. INFLECTRA [Suspect]
     Active Substance: INFLIXIMAB-DYYB
     Dosage: 5 MG/KG, 0, 2, 6 AND EVERY 8 WEEKS
     Route: 042
     Dates: start: 20221230
  3. INFLECTRA [Suspect]
     Active Substance: INFLIXIMAB-DYYB
     Dosage: 5 MG/KG, 0, 2, 6 AND EVERY 8 WEEKS
     Route: 042
     Dates: start: 20230227
  4. INFLECTRA [Suspect]
     Active Substance: INFLIXIMAB-DYYB
     Dosage: 600 MG, W 0, W 2, W 6 THEN Q 8 WEEKS (FIRST RE-INDUCTION DOSE)
     Route: 042
     Dates: start: 20230405
  5. INFLECTRA [Suspect]
     Active Substance: INFLIXIMAB-DYYB
     Dosage: 600 MG, WEEK 2 (REINDUCTION) (Q 0, 2, 6, THEN EVERY 8 WEEKS)
     Route: 042
     Dates: start: 20230420

REACTIONS (8)
  - Death [Fatal]
  - Weight decreased [Not Recovered/Not Resolved]
  - Drug specific antibody present [Unknown]
  - Condition aggravated [Not Recovered/Not Resolved]
  - Blood pressure systolic increased [Unknown]
  - Arthritis [Unknown]
  - Drug level below therapeutic [Unknown]
  - Off label use [Unknown]

NARRATIVE: CASE EVENT DATE: 20230227
